FAERS Safety Report 7556413-2 (Version None)
Quarter: 2011Q2

REPORT INFORMATION
  Report Type: 
  Country: None (occurrence: None)
  Receive Date: 20110620
  Receipt Date: 20110607
  Transmission Date: 20111010
  Serious: Yes (Other)
  Sender: FDA-Public Use
  Company Number: AR-AMGEN-ARGSP2011024302

PATIENT
  Age: 39 Year
  Sex: Male

DRUGS (10)
  1. ARTIFICIAL TEARS [Concomitant]
  2. ETORICOXIB [Concomitant]
  3. ENBREL [Suspect]
     Dosage: 50 MG, WEEKLY
     Dates: start: 20060901
  4. FOLIC ACID [Concomitant]
  5. CORTICOSTEROIDS [Concomitant]
  6. METHOTREXATE [Concomitant]
     Dosage: LOW DOSE
  7. ENBREL [Suspect]
     Dosage: 25 MG, WEEKLY
     Dates: start: 20060901
  8. ENBREL [Suspect]
     Dosage: 50 MG, WEEKLY
     Dates: start: 20090901
  9. METHOTREXATE [Concomitant]
     Dosage: 15 MG, WEEKLY
  10. PREDNISONE [Concomitant]
     Dosage: 10 MG, 1X/DAY

REACTIONS (1)
  - FELTY'S SYNDROME [None]
